FAERS Safety Report 25455644 (Version 3)
Quarter: 2025Q3

REPORT INFORMATION
  Report Type: Spontaneous
  Country: EU (occurrence: EU)
  Receive Date: 20250619
  Receipt Date: 20250709
  Transmission Date: 20251021
  Serious: Yes (Hospitalization, Other)
  Sender: NOVARTIS
  Company Number: EU-002147023-NVSC2025PL093699

PATIENT
  Age: 54 Year
  Sex: Female

DRUGS (6)
  1. KISQALI [Suspect]
     Active Substance: RIBOCICLIB SUCCINATE
     Indication: Breast cancer
     Route: 065
     Dates: start: 20240307
  2. KISQALI [Suspect]
     Active Substance: RIBOCICLIB SUCCINATE
     Dosage: 400 MG, QD
     Route: 065
  3. PACLITAXEL [Suspect]
     Active Substance: PACLITAXEL
     Indication: Product used for unknown indication
     Route: 065
     Dates: start: 201504, end: 201504
  4. TAMOXIFEN [Suspect]
     Active Substance: TAMOXIFEN
     Indication: Product used for unknown indication
     Route: 065
     Dates: start: 201909, end: 202101
  5. LETROZOLE [Suspect]
     Active Substance: LETROZOLE
     Indication: Product used for unknown indication
     Route: 065
     Dates: start: 20240307
  6. DOXORUBICIN [Suspect]
     Active Substance: DOXORUBICIN
     Indication: Product used for unknown indication
     Route: 065
     Dates: start: 201504, end: 201504

REACTIONS (15)
  - Pneumonia [Unknown]
  - Deep vein thrombosis [Unknown]
  - Neutropenia [Unknown]
  - Liver injury [Unknown]
  - Hepatotoxicity [Unknown]
  - Breast cancer recurrent [Unknown]
  - Metastases to liver [Unknown]
  - Chronic fatigue syndrome [Unknown]
  - Dizziness [Unknown]
  - Headache [Unknown]
  - Depressed mood [Unknown]
  - Bone pain [Unknown]
  - Lymphoedema [Unknown]
  - Osteoporosis [Unknown]
  - Condition aggravated [Unknown]

NARRATIVE: CASE EVENT DATE: 20240418
